FAERS Safety Report 10037656 (Version 1)
Quarter: 2014Q1

REPORT INFORMATION
  Report Type: Spontaneous
  Country: US (occurrence: None)
  Receive Date: 20140325
  Receipt Date: 20140325
  Transmission Date: 20141002
  Serious: Yes (Other)
  Sender: FDA-Public Use
  Company Number: None

PATIENT
  Age: 16 Year
  Sex: Male
  Weight: 114 kg

DRUGS (4)
  1. NORDITROPIN FLEXPRO [Suspect]
     Indication: GROWTH HORMONE DEFICIENCY
     Dosage: 6 NIGHTS PER WEEK
     Route: 058
     Dates: start: 20130217, end: 20140324
  2. ADVAIR DISKUS [Concomitant]
  3. ALBUTEROL [Concomitant]
  4. METFORMIN [Concomitant]

REACTIONS (1)
  - Type 2 diabetes mellitus [None]
